FAERS Safety Report 12069208 (Version 1)
Quarter: 2016Q1

REPORT INFORMATION
  Report Type: Spontaneous
  Country: KR (occurrence: KR)
  Receive Date: 20160211
  Receipt Date: 20160211
  Transmission Date: 20160526
  Serious: Yes (Hospitalization)
  Sender: FDA-Public Use
  Company Number: KR-AMGEN-KORCT2016015596

PATIENT
  Age: 33 Year
  Sex: Female
  Weight: 77 kg

DRUGS (4)
  1. CYCLOPHOSPHAMIDE. [Concomitant]
     Active Substance: CYCLOPHOSPHAMIDE
     Dosage: 950 MG, UNK
     Route: 042
     Dates: start: 20160121, end: 20160121
  2. DOCETAXEL. [Concomitant]
     Active Substance: DOCETAXEL
     Dosage: 142 MG, UNK
     Route: 042
     Dates: start: 20160121, end: 20160121
  3. G-LASTA [Suspect]
     Active Substance: PEGFILGRASTIM
     Indication: FEBRILE NEUTROPENIA
     Dosage: 6 MG, Q3WK
     Route: 058
     Dates: start: 20160122
  4. DOXORUBICIN [Concomitant]
     Active Substance: DOXORUBICIN
     Dosage: 95 MG, UNK
     Route: 042
     Dates: start: 20160121, end: 20160121

REACTIONS (1)
  - Neutropenia [Recovered/Resolved]

NARRATIVE: CASE EVENT DATE: 20160128
